FAERS Safety Report 4335297-X (Version None)
Quarter: 2004Q2

REPORT INFORMATION
  Report Type: 
  Country: None (occurrence: None)
  Receive Date: 20040408
  Receipt Date: 20040408
  Transmission Date: 20050107
  Serious: Yes (Death)
  Sender: FDA-Public Use
  Company Number: None

PATIENT
  Age: 81 Year
  Sex: Male

DRUGS (5)
  1. CELEBREX [Suspect]
     Indication: LUNG CANCER METASTATIC
     Dosage: 400 MG 2X  PER DAY ORAL
     Route: 048
     Dates: start: 20040126, end: 20040318
  2. TAXOTERE [Suspect]
     Indication: LUNG CANCER METASTATIC
     Dosage: 36 MG/M2 WEEKLY IV
     Route: 042
     Dates: start: 20040126, end: 20040308
  3. ZOLOFT [Concomitant]
  4. CLARITIN-D [Concomitant]
  5. HYCODAN [Concomitant]

REACTIONS (2)
  - LUNG CANCER METASTATIC [None]
  - MALIGNANT NEOPLASM PROGRESSION [None]
